FAERS Safety Report 7795913-7 (Version None)
Quarter: 2011Q4

REPORT INFORMATION
  Report Type: 
  Country: None (occurrence: None)
  Receive Date: 20111004
  Receipt Date: 20110922
  Transmission Date: 20120403
  Serious: Yes (Other)
  Sender: FDA-Public Use
  Company Number: US-ELI_LILLY_AND_COMPANY-US201109007251

PATIENT
  Sex: Female

DRUGS (1)
  1. FORTEO [Suspect]
     Indication: OSTEOPOROSIS
     Dosage: 20 UG, QD
     Dates: start: 20110701

REACTIONS (10)
  - DEMENTIA [None]
  - DYSPHAGIA [None]
  - ABNORMAL BEHAVIOUR [None]
  - PAIN [None]
  - DELIRIUM [None]
  - SCREAMING [None]
  - GENERAL PHYSICAL HEALTH DETERIORATION [None]
  - INCONTINENCE [None]
  - MENTAL DISORDER [None]
  - BALANCE DISORDER [None]
